FAERS Safety Report 20718753 (Version 1)
Quarter: 2022Q2

REPORT INFORMATION
  Report Type: Spontaneous
  Country: FR (occurrence: FR)
  Receive Date: 20220418
  Receipt Date: 20220418
  Transmission Date: 20220720
  Serious: Yes (Hospitalization, Other)
  Sender: FDA-Public Use
  Company Number: FR-AFSSAPS-GR20220956

PATIENT
  Age: 77 Year
  Sex: Female
  Weight: 72 kg

DRUGS (2)
  1. VALPROIC ACID [Suspect]
     Active Substance: VALPROIC ACID
     Indication: Intentional overdose
     Dosage: NP 500MG
     Route: 048
     Dates: start: 20220121, end: 20220121
  2. OXAZEPAM [Suspect]
     Active Substance: OXAZEPAM
     Indication: Intentional overdose
     Dosage: UNK (NP)
     Route: 048
     Dates: start: 20220121, end: 20220121

REACTIONS (4)
  - Altered state of consciousness [Recovered/Resolved]
  - Hypoxia [Recovered/Resolved]
  - Poisoning deliberate [Recovered/Resolved]
  - Bradypnoea [Recovered/Resolved]

NARRATIVE: CASE EVENT DATE: 20220121
